FAERS Safety Report 9215494 (Version 1)
Quarter: 2013Q2

REPORT INFORMATION
  Report Type: Spontaneous
  Country: US (occurrence: US)
  Receive Date: 20130406
  Receipt Date: 20130406
  Transmission Date: 20140414
  Serious: Yes (Hospitalization, Other)
  Sender: FDA-Public Use
  Company Number: US-CELGENEUS-163-21880-13040103

PATIENT
  Age: 59 Year
  Sex: Female

DRUGS (1)
  1. REVLIMID [Suspect]
     Indication: PLASMA CELL MYELOMA
     Dosage: 5 MILLIGRAM
     Route: 048
     Dates: start: 20121211

REACTIONS (2)
  - Impaired healing [Unknown]
  - Intestinal obstruction [Unknown]
